FAERS Safety Report 6763024-5 (Version None)
Quarter: 2010Q2

REPORT INFORMATION
  Report Type: 
  Country: None (occurrence: None)
  Receive Date: 20100609
  Receipt Date: 20100528
  Transmission Date: 20101027
  Serious: Yes (Hospitalization)
  Sender: FDA-Public Use
  Company Number: US-TEVA-236407USA

PATIENT
  Age: 68 Year
  Sex: Male

DRUGS (9)
  1. FLUOROURACIL [Suspect]
     Indication: COLORECTAL CANCER METASTATIC
     Route: 040
     Dates: start: 20100505, end: 20100505
  2. FLUOROURACIL [Suspect]
     Route: 041
     Dates: start: 20100505, end: 20100507
  3. AXITINIB [Suspect]
     Indication: COLORECTAL CANCER METASTATIC
     Route: 048
     Dates: start: 20100420, end: 20100513
  4. IRINOTECAN HYDROCHLORIDE [Suspect]
     Route: 042
     Dates: start: 20100505
  5. FOLINIC ACID [Suspect]
     Route: 042
     Dates: start: 20100505, end: 20100505
  6. LISINOPRIL [Concomitant]
  7. METOPROLOL TARTRATE [Concomitant]
  8. TERAZOSIN HYDROCHLORIDE [Concomitant]
  9. NIFEDIPINE [Concomitant]

REACTIONS (1)
  - BACTERIAL SEPSIS [None]
